FAERS Safety Report 21909527 (Version 1)
Quarter: 2023Q1

REPORT INFORMATION
  Report Type: Spontaneous
  Country: US (occurrence: None)
  Receive Date: 20230124
  Receipt Date: 20230124
  Transmission Date: 20230417
  Serious: No
  Sender: FDA-Public Use
  Company Number: None

PATIENT
  Sex: Male

DRUGS (1)
  1. TEZSPIRE [Suspect]
     Active Substance: TEZEPELUMAB-EKKO
     Dosage: 210MG OTHER SUBCUTANEOUS
     Route: 058

REACTIONS (4)
  - Back pain [None]
  - Arthralgia [None]
  - Pain [None]
  - Visual impairment [None]
